FAERS Safety Report 23970096 (Version 3)
Quarter: 2024Q3

REPORT INFORMATION
  Report Type: Spontaneous
  Country: JP (occurrence: JP)
  Receive Date: 20240613
  Receipt Date: 20240910
  Transmission Date: 20241017
  Serious: Yes (Other)
  Sender: BRISTOL MYERS SQUIBB
  Company Number: JP-ONO-2024JP012264

PATIENT
  Sex: Female

DRUGS (7)
  1. OPDIVO [Suspect]
     Active Substance: NIVOLUMAB
     Indication: Product used for unknown indication
     Route: 041
  2. ENCORAFENIB [Suspect]
     Active Substance: ENCORAFENIB
     Indication: Product used for unknown indication
     Route: 048
  3. ENCORAFENIB [Suspect]
     Active Substance: ENCORAFENIB
     Dosage: HALF OR LESS DOSE
     Route: 048
  4. ENCORAFENIB [Suspect]
     Active Substance: ENCORAFENIB
     Dosage: USUAL DOSE
     Route: 048
     Dates: start: 20240718
  5. BINIMETINIB [Suspect]
     Active Substance: BINIMETINIB
     Indication: Product used for unknown indication
     Route: 048
  6. BINIMETINIB [Suspect]
     Active Substance: BINIMETINIB
     Dosage: HALF OR LESS DOSE
     Route: 048
  7. BINIMETINIB [Suspect]
     Active Substance: BINIMETINIB
     Dosage: USUAL DOSE
     Route: 048
     Dates: start: 20240718

REACTIONS (2)
  - Intestinal obstruction [Unknown]
  - Eye disorder [Unknown]
